FAERS Safety Report 7100169-4 (Version None)
Quarter: 2010Q4

REPORT INFORMATION
  Report Type: 
  Country: None (occurrence: None)
  Receive Date: 20101112
  Receipt Date: 20100707
  Transmission Date: 20110411
  Serious: No
  Sender: FDA-Public Use
  Company Number: A0870309A

PATIENT
  Age: 83 Year
  Sex: Female

DRUGS (1)
  1. COREG [Suspect]
     Dosage: 20MG TWICE PER DAY
     Dates: start: 20040101

REACTIONS (5)
  - CONTUSION [None]
  - DECREASED APPETITE [None]
  - DYSPNOEA [None]
  - HUNGER [None]
  - WEIGHT DECREASED [None]
